FAERS Safety Report 6464156-1 (Version None)
Quarter: 2009Q4

REPORT INFORMATION
  Report Type: 
  Country: None (occurrence: None)
  Receive Date: 20091201
  Receipt Date: 20091022
  Transmission Date: 20100525
  Serious: Yes (Other)
  Sender: FDA-Public Use
  Company Number: US-AMGEN-QUU364852

PATIENT
  Sex: Female
  Weight: 242.9 kg

DRUGS (1)
  1. ENBREL [Suspect]
     Indication: PSORIASIS
     Route: 030
     Dates: start: 20090407, end: 20090925

REACTIONS (11)
  - COUGH [None]
  - EMPHYSEMA [None]
  - EYE SWELLING [None]
  - INCREASED UPPER AIRWAY SECRETION [None]
  - INJECTION SITE REACTION [None]
  - LYMPHADENOPATHY [None]
  - NASOPHARYNGITIS [None]
  - PAIN [None]
  - PULMONARY CONGESTION [None]
  - VOMITING [None]
  - WEIGHT DECREASED [None]
